FAERS Safety Report 9905589 (Version 1)
Quarter: 2014Q1

REPORT INFORMATION
  Report Type: Spontaneous
  Country: IT (occurrence: IT)
  Receive Date: 20140218
  Receipt Date: 20140218
  Transmission Date: 20141002
  Serious: Yes (Hospitalization)
  Sender: FDA-Public Use
  Company Number: IT-GLAXOSMITHKLINE-B0970290A

PATIENT
  Age: 57 Year
  Sex: Male

DRUGS (2)
  1. HYCAMTIN [Suspect]
     Indication: NEOPLASM
     Dosage: 2.7MG PER DAY
     Route: 042
     Dates: start: 20140127
  2. AUGMENTIN [Concomitant]
     Dosage: 2G PER DAY
     Route: 048
     Dates: start: 20140127

REACTIONS (2)
  - Hyperpyrexia [Recovering/Resolving]
  - Rash [Recovering/Resolving]
